FAERS Safety Report 8516998-6 (Version None)
Quarter: 2012Q3

REPORT INFORMATION
  Report Type: 
  Country: None (occurrence: None)
  Receive Date: 20120718
  Receipt Date: 20120712
  Transmission Date: 20120928
  Serious: Yes (Other)
  Sender: FDA-Public Use
  Company Number: BR-SANOFI-AVENTIS-2012SA049947

PATIENT
  Age: 3 Year

DRUGS (1)
  1. ALLEGRA [Suspect]
     Route: 065

REACTIONS (1)
  - CONVULSION [None]
